FAERS Safety Report 7089594-8 (Version None)
Quarter: 2010Q4

REPORT INFORMATION
  Report Type: 
  Country: None (occurrence: None)
  Receive Date: 20101108
  Receipt Date: 20101101
  Transmission Date: 20110411
  Serious: Yes (Hospitalization, Other)
  Sender: FDA-Public Use
  Company Number: US-ROXANE LABORATORIES, INC.-2010-RO-01445RO

PATIENT
  Age: 48 Year
  Sex: Male

DRUGS (16)
  1. METHOTREXATE [Suspect]
     Indication: SYSTEMIC LUPUS ERYTHEMATOSUS
     Dates: end: 20041201
  2. PREDNISONE [Suspect]
     Indication: SYSTEMIC LUPUS ERYTHEMATOSUS
  3. PREDNISONE [Suspect]
  4. SERTRALINE HYDROCHLORIDE [Suspect]
  5. HYDROXYCHLOROQUINE SULFATE [Suspect]
     Indication: SYSTEMIC LUPUS ERYTHEMATOSUS
  6. DAPSONE [Suspect]
     Indication: SYSTEMIC LUPUS ERYTHEMATOSUS
  7. CETIRIZINE HYDROCHLORIDE [Suspect]
  8. CLONAZEPAM [Suspect]
  9. DOXEPIN HYDROCHLORIDE [Suspect]
  10. ETOPOSIDE [Suspect]
     Indication: HODGKIN'S DISEASE STAGE II
     Route: 042
     Dates: start: 20050301
  11. ETOPOSIDE [Suspect]
     Dates: start: 20051201
  12. VINBLASTINE SULFATE [Suspect]
     Indication: HODGKIN'S DISEASE STAGE II
     Route: 042
     Dates: start: 20050301
  13. VINBLASTINE SULFATE [Suspect]
     Dates: start: 20051201
  14. DOXORUBICIN HCL [Suspect]
     Indication: HODGKIN'S DISEASE STAGE II
     Route: 042
     Dates: start: 20050301
  15. DOXORUBICIN HCL [Suspect]
     Dates: start: 20051201
  16. GRANULOCYTE COLONY-STIMULATING FACTOR [Suspect]
     Indication: PROPHYLAXIS

REACTIONS (3)
  - HODGKIN'S DISEASE STAGE II [None]
  - LEUKOPENIA [None]
  - RASH GENERALISED [None]
